FAERS Safety Report 16076753 (Version 1)
Quarter: 2019Q1

REPORT INFORMATION
  Report Type: Report from Study
  Country: US (occurrence: US)
  Receive Date: 20190315
  Receipt Date: 20190315
  Transmission Date: 20190418
  Serious: No
  Sender: FDA-Public Use
  Company Number: PHEH2019US010883

PATIENT
  Sex: Male

DRUGS (1)
  1. COSENTYX [Suspect]
     Active Substance: SECUKINUMAB
     Indication: PSORIASIS
     Dosage: 300 MG, QW (FOR 5 WEEKS AND THEN Q4W)
     Route: 058
     Dates: start: 20190214

REACTIONS (5)
  - Concomitant disease aggravated [Unknown]
  - Dysphagia [Unknown]
  - Implant site pain [Unknown]
  - Oral candidiasis [Unknown]
  - Dry throat [Unknown]
